FAERS Safety Report 7287591-0 (Version None)
Quarter: 2011Q1

REPORT INFORMATION
  Report Type: 
  Country: None (occurrence: None)
  Receive Date: 20110211
  Receipt Date: 20110209
  Transmission Date: 20110831
  Serious: Yes (Death)
  Sender: FDA-Public Use
  Company Number: US-ASTELLAS-2011US000570

PATIENT
  Sex: Male

DRUGS (2)
  1. PROGRAF [Suspect]
     Indication: LIVER TRANSPLANT
     Dosage: 9 MG, UID/QD
     Route: 048
     Dates: start: 20090211
  2. MYFORTIC [Concomitant]
     Indication: LIVER TRANSPLANT
     Dosage: 720 MG, BID
     Route: 048

REACTIONS (1)
  - ADENOCARCINOMA [None]
